FAERS Safety Report 6645916-0 (Version None)
Quarter: 2010Q1

REPORT INFORMATION
  Report Type: 
  Country: None (occurrence: None)
  Receive Date: 20100323
  Receipt Date: 20100312
  Transmission Date: 20100710
  Serious: Yes (Other)
  Sender: FDA-Public Use
  Company Number: PHHY2010BR15562

PATIENT
  Age: 67 Year
  Sex: Female

DRUGS (1)
  1. FORASEQ [Suspect]
     Indication: ALLERGIC BRONCHITIS
     Dosage: BID

REACTIONS (6)
  - BEDRIDDEN [None]
  - DEVICE MALFUNCTION [None]
  - DYSPNOEA [None]
  - MALAISE [None]
  - PNEUMONIA [None]
  - TREATMENT NONCOMPLIANCE [None]
